FAERS Safety Report 5250452-2 (Version None)
Quarter: 2007Q1

REPORT INFORMATION
  Report Type: 
  Country: None (occurrence: None)
  Receive Date: 20070228
  Receipt Date: 20060418
  Transmission Date: 20070707
  Serious: No
  Sender: FDA-Public Use
  Company Number: US-GLAXOSMITHKLINE-A0602177A

PATIENT
  Age: 43 Year
  Sex: Female

DRUGS (3)
  1. LAMICTAL [Suspect]
     Indication: BIPOLAR DISORDER
     Dosage: 25MG PER DAY
     Route: 048
  2. NEURONTIN [Concomitant]
  3. TRAMADOL HCL [Concomitant]

REACTIONS (8)
  - ALLERGY TO ARTHROPOD BITE [None]
  - EUPHORIC MOOD [None]
  - FEELING HOT [None]
  - HEADACHE [None]
  - NIGHTMARE [None]
  - PARAESTHESIA [None]
  - PRURITUS [None]
  - URTICARIA [None]
